FAERS Safety Report 5428943-0 (Version None)
Quarter: 2007Q3

REPORT INFORMATION
  Report Type: 
  Country: None (occurrence: None)
  Receive Date: 20070827
  Receipt Date: 20070815
  Transmission Date: 20080115
  Serious: Yes (Hospitalization)
  Sender: FDA-Public Use
  Company Number: 2006P1000330

PATIENT
  Age: 55 Year
  Sex: Male

DRUGS (7)
  1. RETEPLASE (RETEPLASE) [Suspect]
     Indication: ACUTE MYOCARDIAL INFARCTION
     Dosage: 5 IU; X1; IV
     Route: 042
     Dates: start: 20051213, end: 20051213
  2. ABCIXIMAB (ABCIXIMAB) [Suspect]
     Indication: ACUTE MYOCARDIAL INFARCTION
     Dosage: 13.3 MG; X1; IV, 39.6 MG; X1; IV
     Route: 042
     Dates: start: 20051213, end: 20051213
  3. ABCIXIMAB (ABCIXIMAB) [Suspect]
     Indication: ACUTE MYOCARDIAL INFARCTION
     Dosage: 13.3 MG; X1; IV, 39.6 MG; X1; IV
     Route: 042
     Dates: start: 20051213, end: 20051213
  4. ACETYLSALICYLATE CALCIUM [Concomitant]
  5. CLOPIDOGREL [Concomitant]
  6. METOPROLOL SUCCINATE [Concomitant]
  7. SIMVASTATIN [Concomitant]

REACTIONS (2)
  - CORONARY ARTERY DISEASE [None]
  - CORONARY ARTERY STENOSIS [None]
